FAERS Safety Report 16426801 (Version 1)
Quarter: 2019Q2

REPORT INFORMATION
  Report Type: Spontaneous
  Country: PT (occurrence: PT)
  Receive Date: 20190613
  Receipt Date: 20190613
  Transmission Date: 20190711
  Serious: Yes (Hospitalization)
  Sender: FDA-Public Use
  Company Number: PT-MYLANLABS-2019M1054674

PATIENT
  Age: 70 Year
  Sex: Female

DRUGS (5)
  1. CARBIDOPA/LEVODOPA [Suspect]
     Active Substance: CARBIDOPA\LEVODOPA
     Indication: PARKINSON^S DISEASE
     Dosage: FOUR TIMES PER DAY; FORMULATION: PILLS
     Route: 048
  2. ROPINIROLE. [Suspect]
     Active Substance: ROPINIROLE
     Indication: PARKINSON^S DISEASE
     Dosage: 8 MILLIGRAM, QD
     Route: 048
  3. SERTRALINE [Concomitant]
     Active Substance: SERTRALINE HYDROCHLORIDE
     Indication: MAJOR DEPRESSION
     Dosage: 50 MILLIGRAM
     Route: 065
  4. CARBIDOPA/LEVODOPA [Suspect]
     Active Substance: CARBIDOPA\LEVODOPA
     Dosage: SIX TIMES PER DAY
     Route: 048
  5. MIANSERIN [Concomitant]
     Active Substance: MIANSERIN
     Indication: MAJOR DEPRESSION
     Dosage: 30 MILLIGRAM, QD
     Route: 065

REACTIONS (2)
  - Extra dose administered [Recovered/Resolved]
  - Dopamine dysregulation syndrome [Recovered/Resolved]
